FAERS Safety Report 23545182 (Version 1)
Quarter: 2024Q1

REPORT INFORMATION
  Report Type: Spontaneous
  Country: CZ (occurrence: CZ)
  Receive Date: 20240220
  Receipt Date: 20240220
  Transmission Date: 20240410
  Serious: Yes (Other)
  Sender: FDA-Public Use
  Company Number: CZ-TEVA-VS-3150903

PATIENT
  Sex: Female

DRUGS (5)
  1. LINEZOLID [Suspect]
     Active Substance: LINEZOLID
     Indication: Bronchopulmonary aspergillosis
     Route: 065
  2. MEROPENEM [Suspect]
     Active Substance: MEROPENEM
     Indication: Bronchopulmonary aspergillosis
     Route: 065
  3. VORICONAZOLE [Suspect]
     Active Substance: VORICONAZOLE
     Indication: Bronchopulmonary aspergillosis
     Route: 065
  4. VORICONAZOLE [Suspect]
     Active Substance: VORICONAZOLE
     Route: 065
  5. AVIBACTAM SODIUM\CEFTAZIDIME [Suspect]
     Active Substance: AVIBACTAM SODIUM\CEFTAZIDIME
     Indication: Bronchopulmonary aspergillosis

REACTIONS (4)
  - Drug ineffective [Unknown]
  - Multiple organ dysfunction syndrome [Unknown]
  - Liver disorder [Unknown]
  - Drug interaction [Unknown]
